FAERS Safety Report 16261521 (Version 1)
Quarter: 2019Q2

REPORT INFORMATION
  Report Type: Spontaneous
  Country: US (occurrence: US)
  Receive Date: 20190501
  Receipt Date: 20190501
  Transmission Date: 20190711
  Serious: Yes (Other)
  Sender: FDA-Public Use
  Company Number: US-SA-2019SA112525

PATIENT
  Age: 64 Year
  Sex: Female
  Weight: 118 kg

DRUGS (7)
  1. TAXOTERE [Suspect]
     Active Substance: DOCETAXEL
     Indication: BREAST CANCER FEMALE
     Dosage: 175 MG, Q3W
     Route: 042
     Dates: start: 20130430, end: 20130430
  2. TAXOTERE [Suspect]
     Active Substance: DOCETAXEL
     Dosage: 175 MG, Q3W
     Route: 042
     Dates: start: 20130821, end: 20130821
  3. LEVOTHYROXINE. [Concomitant]
     Active Substance: LEVOTHYROXINE
     Dosage: UNK
     Dates: start: 2008
  4. SIMVASTATIN. [Concomitant]
     Active Substance: SIMVASTATIN
     Dosage: UNK
     Dates: start: 2008
  5. HERCEPTIN [Concomitant]
     Active Substance: TRASTUZUMAB
  6. CHOLESTEROL [Concomitant]
     Active Substance: CHOLESTEROL
  7. PARAPLATIN [Concomitant]
     Active Substance: CARBOPLATIN

REACTIONS (2)
  - Alopecia [Recovering/Resolving]
  - Psychological trauma [Unknown]

NARRATIVE: CASE EVENT DATE: 20140221
